FAERS Safety Report 17966013 (Version 2)
Quarter: 2020Q3

REPORT INFORMATION
  Report Type: Spontaneous
  Country: US (occurrence: US)
  Receive Date: 20200701
  Receipt Date: 20200810
  Transmission Date: 20201103
  Serious: No
  Sender: FDA-Public Use
  Company Number: US-JNJFOC-20200629650

PATIENT
  Age: 33 Year
  Sex: Female

DRUGS (1)
  1. NEUTROGENA OIL FREE ACNE WASH PINK GRAPEFRUIT FACIAL CLEANSER [Suspect]
     Active Substance: SALICYLIC ACID
     Indication: REMOVAL OF INERT MATTER FROM SKIN OR SUBCUTANEOUS TISSUE
     Route: 061
     Dates: start: 20200616, end: 20200618

REACTIONS (1)
  - Hypersensitivity [Recovered/Resolved]

NARRATIVE: CASE EVENT DATE: 20200618
